FAERS Safety Report 13864916 (Version 1)
Quarter: 2017Q3

REPORT INFORMATION
  Report Type: Spontaneous
  Country: FR (occurrence: FR)
  Receive Date: 20170814
  Receipt Date: 20170814
  Transmission Date: 20171127
  Serious: Yes (Death, Other)
  Sender: FDA-Public Use
  Company Number: FR-PFIZER INC-2017346067

PATIENT
  Age: 54 Year
  Sex: Male
  Weight: 110 kg

DRUGS (8)
  1. LASILIX /00032601/ [Concomitant]
     Active Substance: FUROSEMIDE
  2. FLUOROURACILE ACCORD [Suspect]
     Active Substance: FLUOROURACIL
     Indication: COLORECTAL CANCER METASTATIC
     Dosage: 7000 MG, DAILY
     Route: 042
     Dates: start: 20160821, end: 20160823
  3. OXALIPLATIN. [Suspect]
     Active Substance: OXALIPLATIN
     Indication: COLORECTAL CANCER METASTATIC
     Dosage: 210 MG, DAILY
     Route: 042
     Dates: start: 20160821, end: 20160821
  4. IRINOTECAN HCL [Suspect]
     Active Substance: IRINOTECAN HYDROCHLORIDE
     Indication: COLORECTAL CANCER METASTATIC
     Dosage: 373.5 MG, DAILY
     Route: 042
     Dates: start: 20160821, end: 20160821
  5. COVERAM [Concomitant]
     Active Substance: AMLODIPINE\PERINDOPRIL
  6. AVASTIN /00848101/ [Suspect]
     Active Substance: SIMVASTATIN
     Indication: COLORECTAL CANCER METASTATIC
     Dosage: 620 MG, DAILY
     Route: 042
     Dates: start: 20160821, end: 20160821
  7. PRIMPERAN [Concomitant]
     Active Substance: METOCLOPRAMIDE HYDROCHLORIDE
  8. DIFFU K [Concomitant]
     Active Substance: POTASSIUM CHLORIDE

REACTIONS (3)
  - Peritonitis [Fatal]
  - Septic shock [Fatal]
  - Large intestine perforation [Fatal]

NARRATIVE: CASE EVENT DATE: 20160908
